FAERS Safety Report 11302265 (Version 1)
Quarter: 2015Q3

REPORT INFORMATION
  Report Type: Spontaneous
  Country: US (occurrence: US)
  Receive Date: 20150722
  Receipt Date: 20150722
  Transmission Date: 20151125
  Serious: No
  Sender: FDA-Public Use
  Company Number: US-ELI_LILLY_AND_COMPANY-US200804000542

PATIENT
  Sex: Female
  Weight: 66.21 kg

DRUGS (8)
  1. NASONEX [Concomitant]
     Active Substance: MOMETASONE FUROATE
  2. CITRICAL [Concomitant]
     Active Substance: CALCIUM CITRATE
     Indication: VITAMIN SUPPLEMENTATION
  3. XALATAN                                 /SCH/ [Concomitant]
     Indication: INTRAOCULAR PRESSURE INCREASED
  4. RESTASIS [Concomitant]
     Active Substance: CYCLOSPORINE
  5. CELEBREX [Concomitant]
     Active Substance: CELECOXIB
  6. PROTOPIC [Concomitant]
     Active Substance: TACROLIMUS
  7. NEXIUM [Concomitant]
     Active Substance: ESOMEPRAZOLE MAGNESIUM
     Indication: GASTROOESOPHAGEAL REFLUX DISEASE
  8. EVISTA [Suspect]
     Active Substance: RALOXIFENE HYDROCHLORIDE
     Indication: OSTEOPENIA
     Dosage: 60 MG, DAILY (1/D)
     Dates: start: 200709

REACTIONS (4)
  - Sleep disorder [Unknown]
  - Hyperhidrosis [Unknown]
  - Hot flush [Not Recovered/Not Resolved]
  - Weight increased [Not Recovered/Not Resolved]
